FAERS Safety Report 8951913 (Version 1)
Quarter: 2012Q4

REPORT INFORMATION
  Report Type: Report from Study
  Country: RU (occurrence: RU)
  Receive Date: 20121204
  Receipt Date: 20121204
  Transmission Date: 20130627
  Serious: Yes (Hospitalization)
  Sender: FDA-Public Use
  Company Number: RU-ROCHE-1160951

PATIENT
  Age: 41 Year
  Sex: Male
  Weight: 81 kg

DRUGS (2)
  1. RIBAVIRIN [Suspect]
     Indication: CHRONIC HEPATITIS C
     Dosage: last dose prior to SAE: 27/Feb/2011
     Route: 048
     Dates: start: 20101018
  2. PEG-INTERFERON ALFA 2A [Suspect]
     Indication: CHRONIC HEPATITIS C
     Dosage: last dose prior to SAE: 27/Feb/2011
     Route: 058
     Dates: start: 20101018

REACTIONS (1)
  - Vascular encephalopathy [Recovered/Resolved]
